FAERS Safety Report 10458677 (Version 7)
Quarter: 2015Q2

REPORT INFORMATION
  Report Type: Report from Study
  Country: FR (occurrence: FR)
  Receive Date: 20140917
  Receipt Date: 20150611
  Transmission Date: 20150821
  Serious: Yes (Other)
  Sender: FDA-Public Use
  Company Number: FR-JNJFOC-20140909572

PATIENT
  Sex: Female

DRUGS (1)
  1. HALDOL [Suspect]
     Active Substance: HALOPERIDOL
     Indication: SCHIZOPHRENIA
     Route: 065

REACTIONS (6)
  - Impatience [Recovering/Resolving]
  - Musculoskeletal stiffness [Recovering/Resolving]
  - Blindness [Recovered/Resolved]
  - Eyelid disorder [Recovered/Resolved]
  - Activities of daily living impaired [Recovering/Resolving]
  - Tardive dyskinesia [Recovering/Resolving]
